FAERS Safety Report 22602570 (Version 1)
Quarter: 2023Q2

REPORT INFORMATION
  Report Type: Spontaneous
  Country: CN (occurrence: CN)
  Receive Date: 20230614
  Receipt Date: 20230614
  Transmission Date: 20230722
  Serious: Yes (Life-Threatening)
  Sender: FDA-Public Use
  Company Number: CN-JNJFOC-20230625907

PATIENT
  Age: 74 Year
  Sex: Female

DRUGS (1)
  1. RISPERDAL [Suspect]
     Active Substance: RISPERIDONE
     Indication: Mood disorder due to a general medical condition
     Dosage: IN VARYING DOSES OF 2 MG, 1.5 MG TO 1 MG
     Route: 048
     Dates: start: 20230413, end: 20230607

REACTIONS (2)
  - Coma [Not Recovered/Not Resolved]
  - Sedation complication [Not Recovered/Not Resolved]

NARRATIVE: CASE EVENT DATE: 20230606
